FAERS Safety Report 15112481 (Version 2)
Quarter: 2019Q4

REPORT INFORMATION
  Report Type: Report from Study
  Country: CA (occurrence: CA)
  Receive Date: 20180705
  Receipt Date: 20191106
  Transmission Date: 20200122
  Serious: Yes (Other)
  Sender: FDA-Public Use
  Company Number: PHHY2018CA061150

PATIENT
  Age: 41 Year
  Sex: Female

DRUGS (2)
  1. GILENYA [Suspect]
     Active Substance: FINGOLIMOD HYDROCHLORIDE
     Indication: PRODUCT USED FOR UNKNOWN INDICATION
     Dosage: UNK, QD
     Route: 048
     Dates: start: 20171213
  2. GILENYA [Suspect]
     Active Substance: FINGOLIMOD HYDROCHLORIDE
     Dosage: 3 TIME A WEEK
     Route: 065
     Dates: start: 20191024

REACTIONS (9)
  - Pain in extremity [Unknown]
  - Vertigo [Unknown]
  - Musculoskeletal pain [Unknown]
  - White blood cell count decreased [Unknown]
  - Epilepsy [Unknown]
  - Fatigue [Unknown]
  - Inappropriate schedule of product administration [Unknown]
  - Blood pressure decreased [Unknown]
  - Rash [Recovering/Resolving]

NARRATIVE: CASE EVENT DATE: 20180331
